FAERS Safety Report 4478831-1 (Version None)
Quarter: 2004Q4

REPORT INFORMATION
  Report Type: 
  Country: None (occurrence: None)
  Receive Date: 20041019
  Receipt Date: 20041014
  Transmission Date: 20050328
  Serious: Yes (Hospitalization)
  Sender: FDA-Public Use
  Company Number: PHBS2004CL13716

PATIENT
  Age: 41 Year
  Sex: Male

DRUGS (7)
  1. CLOZAPINE [Suspect]
     Indication: BIPOLAR DISORDER
     Route: 065
  2. CLONAZEPAM [Concomitant]
     Route: 065
  3. CLOMIPRAMINE HCL [Concomitant]
     Route: 065
  4. VALPROIC ACID [Concomitant]
     Route: 065
  5. LAMOTRIGINE [Concomitant]
     Route: 065
  6. OLANZAPINE [Concomitant]
     Route: 065
  7. TRAZODONE HCL [Concomitant]
     Route: 065

REACTIONS (2)
  - DRUG HYPERSENSITIVITY [None]
  - PNEUMONIA PRIMARY ATYPICAL [None]
